FAERS Safety Report 8053749-6 (Version None)
Quarter: 2012Q1

REPORT INFORMATION
  Report Type: 
  Country: None (occurrence: None)
  Receive Date: 20120118
  Receipt Date: 20120113
  Transmission Date: 20120608
  Serious: Yes (Hospitalization, Other)
  Sender: FDA-Public Use
  Company Number: US-PFIZER INC-2012007193

PATIENT
  Sex: Female

DRUGS (1)
  1. LYRICA [Suspect]
     Dosage: UNK

REACTIONS (12)
  - VISUAL ACUITY REDUCED [None]
  - MYOCARDIAL INFARCTION [None]
  - CEREBROVASCULAR ACCIDENT [None]
  - DYSPNOEA [None]
  - DYSGRAPHIA [None]
  - DRUG INTOLERANCE [None]
  - FALL [None]
  - INFECTION [None]
  - FIBROMYALGIA [None]
  - LOSS OF CONSCIOUSNESS [None]
  - ASTHENIA [None]
  - JOINT STIFFNESS [None]
